FAERS Safety Report 7667297-6 (Version None)
Quarter: 2011Q3

REPORT INFORMATION
  Report Type: 
  Country: None (occurrence: None)
  Receive Date: 20110806
  Receipt Date: 20110407
  Transmission Date: 20111222
  Serious: No
  Sender: FDA-Public Use
  Company Number: US-ABBOTT-11P-163-0717174-00

PATIENT
  Sex: Male
  Weight: 90.8 kg

DRUGS (5)
  1. SIMVASTATIN [Concomitant]
     Indication: PRODUCT USED FOR UNKNOWN INDICATION
  2. NIASPAN [Suspect]
     Indication: PRODUCT USED FOR UNKNOWN INDICATION
     Dosage: AT HOUR OF SLEEP
     Dates: start: 20101001
  3. ASPIRIN [Concomitant]
     Indication: PRODUCT USED FOR UNKNOWN INDICATION
     Dosage: 30 MINUTES PRIOR TO MEDICINE
  4. MEDICINE FOR HEARTBURN/REFLUX [Concomitant]
     Indication: GASTROOESOPHAGEAL REFLUX DISEASE
  5. MEDICINE FOR HEARTBURN/REFLUX [Concomitant]

REACTIONS (1)
  - SKIN BURNING SENSATION [None]
